FAERS Safety Report 9686573 (Version 2)
Quarter: 2013Q4

REPORT INFORMATION
  Report Type: Spontaneous
  Country: US (occurrence: US)
  Receive Date: 20131113
  Receipt Date: 20131219
  Transmission Date: 20140711
  Serious: No
  Sender: FDA-Public Use
  Company Number: US-GLAXOSMITHKLINE-A1031572A

PATIENT
  Age: 72 Year
  Sex: Female
  Weight: 97.7 kg

DRUGS (16)
  1. TYKERB [Suspect]
     Indication: BREAST CANCER
     Dosage: 1250MG PER DAY
     Route: 048
     Dates: start: 20130601, end: 20130706
  2. XELODA [Suspect]
     Indication: PRODUCT USED FOR UNKNOWN INDICATION
     Dosage: 2000MG TWICE PER DAY
     Route: 048
     Dates: start: 20130601, end: 20130707
  3. PROCHLORPERAZINE MALEATE [Concomitant]
  4. MAGIC MOUTHWASH [Concomitant]
  5. TRIAMCINOLONE ACETONIDE [Concomitant]
  6. LORAZEPAM [Concomitant]
  7. PROMETHAZINE VC WITH CODEINE [Concomitant]
  8. DIOVAN HCT [Concomitant]
  9. MULTIVITAMIN [Concomitant]
  10. VITAMIN D [Concomitant]
  11. VITAMIN C [Concomitant]
  12. HERCEPTIN [Concomitant]
  13. XGEVA [Concomitant]
  14. FEMARA [Concomitant]
  15. ABRAXANE [Concomitant]
  16. VITAMIN SUPPLEMENT [Concomitant]

REACTIONS (12)
  - Rash [Recovered/Resolved]
  - Fluid retention [Recovered/Resolved]
  - Nausea [Recovered/Resolved]
  - Diarrhoea [Recovered/Resolved]
  - Asthenia [Recovered/Resolved]
  - Hepatic lesion [Recovered/Resolved]
  - Muscle spasms [Recovered/Resolved]
  - Flatulence [Recovered/Resolved]
  - Pain in extremity [Recovered/Resolved]
  - Vomiting [Recovered/Resolved]
  - Hypotension [Recovered/Resolved]
  - Weight decreased [Recovered/Resolved]
